FAERS Safety Report 13063160 (Version 1)
Quarter: 2016Q4

REPORT INFORMATION
  Report Type: Spontaneous
  Country: US (occurrence: US)
  Receive Date: 20161227
  Receipt Date: 20161227
  Transmission Date: 20170207
  Serious: No
  Sender: FDA-Public Use
  Company Number: US-TEVA-717259USA

PATIENT
  Age: 64 Year
  Sex: Female
  Weight: 80.81 kg

DRUGS (8)
  1. CLARITIN-D 12 HOUR [Concomitant]
     Active Substance: LORATADINE\PSEUDOEPHEDRINE SULFATE
     Indication: HYPERSENSITIVITY
  2. QVAR [Suspect]
     Active Substance: BECLOMETHASONE DIPROPIONATE
     Indication: UPPER RESPIRATORY TRACT INFECTION
     Dosage: 40 MICROGRAM DAILY; TWO PUFFS TWICE DAILY
     Dates: start: 20161128
  3. QVAR [Suspect]
     Active Substance: BECLOMETHASONE DIPROPIONATE
     Indication: WHEEZING
  4. PROAIR HFA [Suspect]
     Active Substance: ALBUTEROL SULFATE
     Indication: DYSPNOEA
     Route: 065
  5. AMOXICILLIN/CLAVULANATE [Concomitant]
     Active Substance: AMOXICILLIN\CLAVULANATE POTASSIUM
     Indication: UPPER RESPIRATORY TRACT INFECTION
     Dates: start: 20161128
  6. CARDIZEM [Concomitant]
     Active Substance: DILTIAZEM HYDROCHLORIDE
     Indication: TACHYCARDIA
  7. HYZAAR [Concomitant]
     Active Substance: HYDROCHLOROTHIAZIDE\LOSARTAN POTASSIUM
     Indication: DIABETES MELLITUS
  8. LIPITOR [Concomitant]
     Active Substance: ATORVASTATIN CALCIUM
     Indication: BLOOD CHOLESTEROL INCREASED

REACTIONS (4)
  - Product use issue [Not Recovered/Not Resolved]
  - Wheezing [Unknown]
  - Product use issue [Not Recovered/Not Resolved]
  - Upper respiratory tract infection [Unknown]

NARRATIVE: CASE EVENT DATE: 20161128
